FAERS Safety Report 6205692-2 (Version None)
Quarter: 2009Q2

REPORT INFORMATION
  Report Type: 
  Country: None (occurrence: None)
  Receive Date: 20090527
  Receipt Date: 20090420
  Transmission Date: 20091009
  Serious: No
  Sender: FDA-Public Use
  Company Number: US-ABBOTT-09P-163-0569156-00

PATIENT
  Sex: Male
  Weight: 82.628 kg

DRUGS (5)
  1. SIMCOR [Suspect]
     Indication: BLOOD CHOLESTEROL INCREASED
     Dosage: 500/20MG DAILY
     Dates: start: 20090401
  2. PLAVIX [Concomitant]
     Indication: CORONARY ARTERIAL STENT INSERTION
     Dates: start: 20080101
  3. METOPROLOL [Concomitant]
     Indication: HYPERTENSION
  4. DIURETIC [Concomitant]
     Indication: HYPERTENSION
  5. URICRIT K [Concomitant]
     Indication: NEPHROLITHIASIS

REACTIONS (1)
  - BLOOD CHOLESTEROL INCREASED [None]
